FAERS Safety Report 17553042 (Version 1)
Quarter: 2020Q1

REPORT INFORMATION
  Report Type: Spontaneous
  Country: US (occurrence: US)
  Receive Date: 20200318
  Receipt Date: 20200318
  Transmission Date: 20200409
  Serious: Yes (Hospitalization)
  Sender: FDA-Public Use
  Company Number: US-TEVA-2020-US-1204082

PATIENT
  Age: 39 Year
  Sex: Male

DRUGS (3)
  1. SPIRONOLACTONE. [Suspect]
     Active Substance: SPIRONOLACTONE
     Indication: MALIGNANT ASCITES
     Route: 065
  2. FUROSEMIDE. [Suspect]
     Active Substance: FUROSEMIDE
     Indication: MALIGNANT ASCITES
     Route: 065
  3. SALT [Suspect]
     Active Substance: SODIUM CHLORIDE
     Indication: HYPONATRAEMIA
     Dosage: 6 GRAM DAILY;
     Route: 065

REACTIONS (2)
  - Hyponatraemia [Recovering/Resolving]
  - Hypovolaemia [Recovering/Resolving]
